FAERS Safety Report 25070149 (Version 2)
Quarter: 2025Q3

REPORT INFORMATION
  Report Type: Spontaneous
  Country: CN (occurrence: CN)
  Receive Date: 20250312
  Receipt Date: 20250809
  Transmission Date: 20251020
  Serious: Yes (Other)
  Sender: ALEXION PHARMACEUTICALS
  Company Number: CN-ASTRAZENECA-202503GLO002217CN

PATIENT
  Age: 48 Year
  Sex: Male

DRUGS (3)
  1. GEFITINIB [Suspect]
     Active Substance: GEFITINIB
     Indication: Lung adenocarcinoma stage IV
     Route: 065
     Dates: start: 20200603, end: 202009
  2. GEFITINIB [Suspect]
     Active Substance: GEFITINIB
     Indication: Metastases to pleura
  3. GEFITINIB [Suspect]
     Active Substance: GEFITINIB
     Indication: EGFR gene mutation

REACTIONS (3)
  - Malignant neoplasm progression [Recovering/Resolving]
  - Malignant transformation [Not Recovered/Not Resolved]
  - Drug resistance [Not Recovered/Not Resolved]

NARRATIVE: CASE EVENT DATE: 20200901
